FAERS Safety Report 11064681 (Version 2)
Quarter: 2015Q2

REPORT INFORMATION
  Report Type: Report from Study
  Country: CO (occurrence: CO)
  Receive Date: 20150424
  Receipt Date: 20150430
  Transmission Date: 20150821
  Serious: Yes (Hospitalization)
  Sender: FDA-Public Use
  Company Number: CO-ASTRAZENECA-2015SE36824

PATIENT
  Age: 23245 Day
  Sex: Female

DRUGS (4)
  1. BYDUREON [Suspect]
     Active Substance: EXENATIDE
     Indication: TYPE 2 DIABETES MELLITUS
     Route: 058
     Dates: start: 20140911
  2. LEVOTHYROXINE [Concomitant]
     Active Substance: LEVOTHYROXINE
     Indication: HYPOTHYROIDISM
  3. LOSARTAN [Concomitant]
     Active Substance: LOSARTAN
  4. ASA [Concomitant]
     Active Substance: ASPIRIN

REACTIONS (3)
  - Chest pain [Not Recovered/Not Resolved]
  - Cerebrovascular accident [Recovered/Resolved with Sequelae]
  - Cough [Not Recovered/Not Resolved]

NARRATIVE: CASE EVENT DATE: 20150326
